FAERS Safety Report 20115843 (Version 1)
Quarter: 2021Q4

REPORT INFORMATION
  Report Type: Spontaneous
  Country: JP (occurrence: JP)
  Receive Date: 20211126
  Receipt Date: 20211126
  Transmission Date: 20220303
  Serious: Yes (Death, Other)
  Sender: FDA-Public Use
  Company Number: JP-GSKNCCC-Case-01361534_AE-52181

PATIENT
  Age: 89 Year
  Sex: Male

DRUGS (1)
  1. SULTANOL [Suspect]
     Active Substance: ALBUTEROL SULFATE
     Dosage: UNK

REACTIONS (1)
  - Death [Fatal]

NARRATIVE: CASE EVENT DATE: 20200101
